FAERS Safety Report 11116016 (Version 1)
Quarter: 2015Q2

REPORT INFORMATION
  Report Type: Spontaneous
  Country: US (occurrence: None)
  Receive Date: 20150514
  Receipt Date: 20150514
  Transmission Date: 20150821
  Serious: No
  Sender: FDA-Public Use
  Company Number: None

PATIENT
  Age: 55 Year
  Sex: Female

DRUGS (1)
  1. CAPECITABINE. [Suspect]
     Active Substance: CAPECITABINE
     Indication: PANCREATIC CARCINOMA
     Dosage: 1000MG, 2000MG, 1000MG QAM 2000MG QPM, ORAL
     Route: 048
     Dates: start: 20150504

REACTIONS (2)
  - Increased appetite [None]
  - Dysgeusia [None]

NARRATIVE: CASE EVENT DATE: 20150513
